FAERS Safety Report 16098548 (Version 1)
Quarter: 2019Q1

REPORT INFORMATION
  Report Type: Spontaneous
  Country: CA (occurrence: CA)
  Receive Date: 20190321
  Receipt Date: 20190321
  Transmission Date: 20190418
  Serious: Yes (Other)
  Sender: FDA-Public Use
  Company Number: CA-TEVA-2019-CA-1026281

PATIENT
  Age: 57 Year
  Sex: Female

DRUGS (4)
  1. XELJANZ [Concomitant]
     Active Substance: TOFACITINIB CITRATE
     Indication: RHEUMATOID ARTHRITIS
     Dosage: 10 MILLIGRAM DAILY;
     Route: 048
  2. METHOTREXATE. [Suspect]
     Active Substance: METHOTREXATE
     Indication: RHEUMATOID ARTHRITIS
     Route: 048
  3. CORTEF [Concomitant]
     Active Substance: HYDROCORTISONE
     Dosage: 15 MILLIGRAM DAILY;
  4. TYLENOL [Concomitant]
     Active Substance: ACETAMINOPHEN
     Indication: ARTHRALGIA

REACTIONS (8)
  - Constipation [Not Recovered/Not Resolved]
  - Diverticulitis [Not Recovered/Not Resolved]
  - Dizziness [Not Recovered/Not Resolved]
  - Disease recurrence [Not Recovered/Not Resolved]
  - Drug ineffective [Not Recovered/Not Resolved]
  - Headache [Not Recovered/Not Resolved]
  - Eating disorder symptom [Not Recovered/Not Resolved]
  - Weight decreased [Not Recovered/Not Resolved]
